FAERS Safety Report 4706915-9 (Version None)
Quarter: 2005Q3

REPORT INFORMATION
  Report Type: 
  Country: None (occurrence: None)
  Receive Date: 20050701
  Receipt Date: 20050624
  Transmission Date: 20060218
  Serious: Yes (Other)
  Sender: FDA-Public Use
  Company Number: 2005057318

PATIENT
  Sex: Female

DRUGS (43)
  1. CELEBREX [Suspect]
     Indication: PAIN
     Dates: start: 19990510
  2. COZAAR [Concomitant]
  3. MINITRAN (GLYCERYL TRINITRATE) [Concomitant]
  4. MIRAPEX [Concomitant]
  5. DYAZIDE [Concomitant]
  6. CYANOCOBALAMIN [Concomitant]
  7. ACTONEL [Concomitant]
  8. NITROSTAT [Concomitant]
  9. PERCOCET [Concomitant]
  10. PARLODEL [Concomitant]
  11. DARVOCET-N 100 [Concomitant]
  12. MACROBID [Concomitant]
  13. CLARITIN-D [Concomitant]
  14. PREMARIN [Concomitant]
  15. LIBRIUM [Concomitant]
  16. PROPULSID [Concomitant]
  17. TYLENOL W/ CODEINE [Concomitant]
  18. PLENDIL [Concomitant]
  19. MIRALAX [Concomitant]
  20. TAGAMET [Concomitant]
  21. CELEXA [Concomitant]
  22. NEURONTIN [Concomitant]
  23. ULTRAM [Concomitant]
  24. OCUFLOX [Concomitant]
  25. BIAXIN [Concomitant]
  26. LOMOTIL [Concomitant]
  27. SINEMET [Concomitant]
  28. TRAZODONE (TRAZODONE) [Concomitant]
  29. ECONOPRED (PREDNISOLONE ACETATE) [Concomitant]
  30. LASIX [Concomitant]
  31. BUMEX [Concomitant]
  32. K-DUR 10 [Concomitant]
  33. DEMADEX [Concomitant]
  34. CEPHALEXIN [Concomitant]
  35. BENADRYL [Concomitant]
  36. ZANAFLEX [Concomitant]
  37. KEFLEX [Concomitant]
  38. TOBRADEX [Concomitant]
  39. ZAROXOLYN [Concomitant]
  40. IODOSORB (CADEXOMER IODINE) [Concomitant]
  41. MEDROL [Concomitant]
  42. VIOXX [Concomitant]
  43. TRIAMCINOLONE [Concomitant]

REACTIONS (22)
  - ABDOMINAL PAIN UPPER [None]
  - ANAL DISCOMFORT [None]
  - BLADDER DISORDER [None]
  - BREAST OEDEMA [None]
  - BREAST PAIN [None]
  - BURNING SENSATION [None]
  - CHOKING [None]
  - CONSTIPATION [None]
  - DRY EYE [None]
  - DYSURIA [None]
  - FOREIGN BODY TRAUMA [None]
  - FREEZING PHENOMENON [None]
  - GASTRIC DISORDER [None]
  - INFREQUENT BOWEL MOVEMENTS [None]
  - LIMB DISCOMFORT [None]
  - MALAISE [None]
  - NEURALGIA [None]
  - PAIN [None]
  - PROCTALGIA [None]
  - RENAL DISORDER [None]
  - VAGINAL BURNING SENSATION [None]
  - VAGINAL PAIN [None]
